FAERS Safety Report 15495427 (Version 1)
Quarter: 2018Q4

REPORT INFORMATION
  Report Type: Spontaneous
  Country: US (occurrence: US)
  Receive Date: 20181013
  Receipt Date: 20181013
  Transmission Date: 20190205
  Serious: No
  Sender: FDA-Public Use
  Company Number: US-JNJFOC-20180917740

PATIENT
  Age: 85 Year
  Sex: Female
  Weight: 60.33 kg

DRUGS (2)
  1. TYLENOL REGULAR STRENGTH [Suspect]
     Active Substance: ACETAMINOPHEN
     Indication: ANXIETY
     Dosage: TOOK 2 IN EVERY MORNING SINCE COUPLE OF MONTHS
     Route: 048
  2. TYLENOL REGULAR STRENGTH [Suspect]
     Active Substance: ACETAMINOPHEN
     Indication: RELAXATION THERAPY
     Dosage: TOOK 2 IN EVERY MORNING SINCE COUPLE OF MONTHS
     Route: 048

REACTIONS (1)
  - Product use in unapproved indication [Unknown]
